FAERS Safety Report 25251139 (Version 3)
Quarter: 2025Q2

REPORT INFORMATION
  Report Type: Report from Study
  Country: US (occurrence: US)
  Receive Date: 20250429
  Receipt Date: 20250626
  Transmission Date: 20250717
  Serious: Yes (Hospitalization, Other)
  Sender: TAKEDA
  Company Number: US-TAKEDA-2025TUS041135

PATIENT
  Age: 69 Year
  Sex: Female
  Weight: 58 kg

DRUGS (32)
  1. HUMAN IMMUNOGLOBULIN G\HYALURONIDASE RECOMBINANT HUMAN [Suspect]
     Active Substance: HUMAN IMMUNOGLOBULIN G\HYALURONIDASE (HUMAN RECOMBINANT)
     Indication: Immunodeficiency common variable
     Dosage: 30 GRAM, Q4WEEKS
     Dates: start: 20160818
  2. HUMAN IMMUNOGLOBULIN G\HYALURONIDASE RECOMBINANT HUMAN [Suspect]
     Active Substance: HUMAN IMMUNOGLOBULIN G\HYALURONIDASE (HUMAN RECOMBINANT)
     Indication: Primary immunodeficiency syndrome
     Dosage: 30 GRAM, Q4WEEKS
     Dates: start: 20160824
  3. HUMAN IMMUNOGLOBULIN G\HYALURONIDASE RECOMBINANT HUMAN [Suspect]
     Active Substance: HUMAN IMMUNOGLOBULIN G\HYALURONIDASE (HUMAN RECOMBINANT)
  4. HUMAN IMMUNOGLOBULIN G\HYALURONIDASE RECOMBINANT HUMAN [Suspect]
     Active Substance: HUMAN IMMUNOGLOBULIN G\HYALURONIDASE (HUMAN RECOMBINANT)
     Dosage: 30 GRAM, Q4WEEKS
  5. METHOTREXATE [Suspect]
     Active Substance: METHOTREXATE
     Indication: Product used for unknown indication
  6. SEREVENT DISKUS [Concomitant]
     Active Substance: SALMETEROL XINAFOATE
  7. VITAMIN B COMPLEX [Concomitant]
     Active Substance: CYANOCOBALAMIN\DEXPANTHENOL\NIACINAMIDE\PYRIDOXINE HYDROCHLORIDE\RIBOFLAVIN 5^-PHOSPHATE SODIUM\THIA
  8. ALEVE [Concomitant]
     Active Substance: NAPROXEN SODIUM
  9. VITAMIN D3 [Concomitant]
     Active Substance: CHOLECALCIFEROL
  10. ACETAMINOPHEN [Concomitant]
     Active Substance: ACETAMINOPHEN
  11. DIPHENHYDRAMINE [Concomitant]
     Active Substance: DIPHENHYDRAMINE
  12. SODIUM CHLORIDE [Concomitant]
     Active Substance: SODIUM CHLORIDE
  13. EPINEPHRINE [Concomitant]
     Active Substance: EPINEPHRINE
  14. AZITHROMYCIN [Concomitant]
     Active Substance: AZITHROMYCIN
  15. NASACORT [Concomitant]
     Active Substance: TRIAMCINOLONE ACETONIDE
  16. PREDNISONE [Concomitant]
     Active Substance: PREDNISONE
  17. AUGMENTIN [Concomitant]
     Active Substance: AMOXICILLIN\CLAVULANATE POTASSIUM
  18. QUADRACEL [Concomitant]
     Active Substance: DIPHTHERIA AND TETANUS TOXOIDS AND ACELLULAR PERTUSSIS ADSORBED AND INACTIVATED POLIOVIRUS VACCINE
  19. ZYRTEC [Concomitant]
     Active Substance: CETIRIZINE HYDROCHLORIDE
  20. CIPROFLOXACIN [Concomitant]
     Active Substance: CIPROFLOXACIN
  21. ATENOLOL [Concomitant]
     Active Substance: ATENOLOL
  22. TUMS [Concomitant]
     Active Substance: CALCIUM CARBONATE
  23. SUMATRIPTAN SUCCINATE [Concomitant]
     Active Substance: SUMATRIPTAN SUCCINATE
  24. XOPENEX HFA [Concomitant]
     Active Substance: LEVALBUTEROL TARTRATE
  25. SPIRIVA [Concomitant]
     Active Substance: TIOTROPIUM BROMIDE MONOHYDRATE
  26. SUMATRIPTAN [Concomitant]
     Active Substance: SUMATRIPTAN
  27. FOLIC ACID [Concomitant]
     Active Substance: FOLIC ACID
  28. SPIRIVA RESPIMAT [Concomitant]
     Active Substance: TIOTROPIUM BROMIDE
  29. BREO ELLIPTA [Concomitant]
     Active Substance: FLUTICASONE FUROATE\VILANTEROL TRIFENATATE
  30. LEVALBUTEROL TARTRATE [Concomitant]
     Active Substance: LEVALBUTEROL TARTRATE
  31. AMOXICILLIN AND CLAVULANATE POTASSIUM [Concomitant]
     Active Substance: AMOXICILLIN\CLAVULANATE POTASSIUM
  32. DIPHENHYDRAMINE HYDROCHLORIDE [Concomitant]
     Active Substance: DIPHENHYDRAMINE HYDROCHLORIDE

REACTIONS (61)
  - Pharyngeal swelling [Not Recovered/Not Resolved]
  - Uveitis [Unknown]
  - Pneumonia [Unknown]
  - Nephrolithiasis [Unknown]
  - Kidney infection [Unknown]
  - Sepsis [Unknown]
  - Ankylosing spondylitis [Unknown]
  - Myocardial infarction [Unknown]
  - Lower respiratory tract infection [Unknown]
  - Electrocardiogram abnormal [Unknown]
  - Renal pain [Unknown]
  - Peripheral swelling [Unknown]
  - Pain [Unknown]
  - Herpes zoster [Unknown]
  - Carpal tunnel syndrome [Unknown]
  - Ulnar nerve injury [Unknown]
  - Trigger finger [Unknown]
  - Multiple allergies [Unknown]
  - Bronchitis [Unknown]
  - Post-acute COVID-19 syndrome [Unknown]
  - Candida infection [Unknown]
  - Poor quality sleep [Unknown]
  - Upper respiratory tract infection [Unknown]
  - Ear infection viral [Unknown]
  - Middle ear effusion [Unknown]
  - Gastrooesophageal reflux disease [Unknown]
  - Hiatus hernia [Unknown]
  - Infusion related reaction [Unknown]
  - Eustachian tube obstruction [Unknown]
  - Viral infection [Unknown]
  - Allergy to plants [Unknown]
  - Hernia [Unknown]
  - Hepatic enzyme increased [Unknown]
  - Seasonal allergy [Unknown]
  - Osteoporosis [Unknown]
  - Arthritis [Unknown]
  - Sinusitis [Unknown]
  - Device infusion issue [Recovered/Resolved]
  - Product dose omission issue [Unknown]
  - Blood immunoglobulin G abnormal [Unknown]
  - Heart rate irregular [Unknown]
  - Nasopharyngitis [Unknown]
  - Musculoskeletal discomfort [Unknown]
  - Nasal congestion [Unknown]
  - Migraine [Unknown]
  - Chills [Unknown]
  - Dyspnoea [Unknown]
  - Fatigue [Unknown]
  - Pyrexia [Unknown]
  - Erythema [Unknown]
  - Headache [Unknown]
  - Back disorder [Unknown]
  - Alopecia [Unknown]
  - Illness [Unknown]
  - Meniscus injury [Unknown]
  - Liver disorder [Unknown]
  - COVID-19 [Recovering/Resolving]
  - Needle issue [Unknown]
  - Asthma [Unknown]
  - Asthenia [Unknown]
  - Hypersensitivity [Unknown]

NARRATIVE: CASE EVENT DATE: 20200504
